FAERS Safety Report 7227225-4 (Version None)
Quarter: 2011Q1

REPORT INFORMATION
  Report Type: 
  Country: None (occurrence: None)
  Receive Date: 20110114
  Receipt Date: 20110105
  Transmission Date: 20110831
  Serious: Yes (Other)
  Sender: FDA-Public Use
  Company Number: A0864093A

PATIENT
  Sex: Female

DRUGS (2)
  1. ADVAIR [Suspect]
     Indication: PRODUCT USED FOR UNKNOWN INDICATION
     Route: 065
  2. REQUIP [Suspect]
     Indication: PRODUCT USED FOR UNKNOWN INDICATION
     Dosage: .25MG UNKNOWN
     Route: 065
     Dates: start: 20091214

REACTIONS (6)
  - LIMB OPERATION [None]
  - LOWER LIMB FRACTURE [None]
  - PARKINSON'S DISEASE [None]
  - FALL [None]
  - BLOOD IRON DECREASED [None]
  - HIP SURGERY [None]
